FAERS Safety Report 13185281 (Version 1)
Quarter: 2017Q1

REPORT INFORMATION
  Report Type: Report from Study
  Country: CA (occurrence: CA)
  Receive Date: 20170203
  Receipt Date: 20170203
  Transmission Date: 20170428
  Serious: Yes (Hospitalization)
  Sender: FDA-Public Use
  Company Number: CA-JNJFOC-20170125311

PATIENT
  Age: 38 Year
  Sex: Male
  Weight: 44.45 kg

DRUGS (1)
  1. STELARA [Suspect]
     Active Substance: USTEKINUMAB
     Indication: CROHN^S DISEASE
     Route: 058
     Dates: start: 20131010

REACTIONS (6)
  - Product use issue [Unknown]
  - Off label use [Unknown]
  - Weight decreased [Unknown]
  - Colostomy [Recovering/Resolving]
  - Abscess [Unknown]
  - Post procedural complication [Unknown]

NARRATIVE: CASE EVENT DATE: 20131010
